FAERS Safety Report 13535856 (Version 1)
Quarter: 2017Q2

REPORT INFORMATION
  Report Type: Spontaneous
  Country: US (occurrence: US)
  Receive Date: 20170511
  Receipt Date: 20170511
  Transmission Date: 20170830
  Serious: Yes (Other)
  Sender: FDA-Public Use
  Company Number: PHEH2017US013792

PATIENT
  Sex: Female

DRUGS (4)
  1. AMIODARONE HYDROCHLORIDE. [Suspect]
     Active Substance: AMIODARONE HYDROCHLORIDE
     Indication: ATRIAL FIBRILLATION
     Dosage: 200 MG, UNK
     Route: 065
     Dates: start: 200709
  2. AMIODARONE HYDROCHLORIDE. [Suspect]
     Active Substance: AMIODARONE HYDROCHLORIDE
     Indication: ATRIAL FIBRILLATION
     Route: 065
  3. AMIODARONE TEVA [Suspect]
     Active Substance: AMIODARONE
     Indication: ATRIAL FIBRILLATION
     Route: 065
  4. AMIODARONE ZYDUS [Suspect]
     Active Substance: AMIODARONE
     Indication: ATRIAL FIBRILLATION
     Route: 065

REACTIONS (16)
  - Heart rate irregular [Unknown]
  - Chronic obstructive pulmonary disease [Unknown]
  - Pulmonary toxicity [Unknown]
  - Dyspnoea [Unknown]
  - Cataract [Unknown]
  - Anxiety [Unknown]
  - Fatigue [Unknown]
  - Oedema [Unknown]
  - Gait disturbance [Unknown]
  - Visual impairment [Unknown]
  - Chest pain [Unknown]
  - Product use in unapproved indication [Unknown]
  - Hypertension [Unknown]
  - Asthenia [Unknown]
  - Depression [Unknown]
  - Insomnia [Unknown]

NARRATIVE: CASE EVENT DATE: 200811
